FAERS Safety Report 8455982-8 (Version None)
Quarter: 2012Q2

REPORT INFORMATION
  Report Type: 
  Country: None (occurrence: None)
  Receive Date: 20120621
  Receipt Date: 20120613
  Transmission Date: 20120825
  Serious: Yes (Hospitalization, Other)
  Sender: FDA-Public Use
  Company Number: AU-ROCHE-1046966

PATIENT
  Sex: Male

DRUGS (8)
  1. PANTOPRAZOLE [Concomitant]
     Route: 048
  2. LEVETIRACETAM [Concomitant]
     Route: 048
  3. ETOPOSIDE [Suspect]
     Indication: GLIOBLASTOMA MULTIFORME
     Dosage: LAST DOE PRIOR TO SAE 24 FEB 2012
     Dates: start: 20120204, end: 20120224
  4. VALSARTAN [Concomitant]
     Route: 048
  5. AMLODIPINE [Concomitant]
     Route: 048
  6. COLOXYL + SENNA [Concomitant]
     Route: 048
  7. AVASTIN [Suspect]
     Indication: GLIOBLASTOMA MULTIFORME
     Dates: start: 20120131
  8. DEXAMETHASONE SODIUM POSPHATE [Concomitant]
     Route: 048

REACTIONS (6)
  - HYPOPHAGIA [None]
  - DEHYDRATION [None]
  - NEUTROPENIA [None]
  - RENAL FAILURE ACUTE [None]
  - BLOOD CREATININE INCREASED [None]
  - MUCOSAL INFLAMMATION [None]
